FAERS Safety Report 6205969-0 (Version None)
Quarter: 2009Q2

REPORT INFORMATION
  Report Type: 
  Country: None (occurrence: None)
  Receive Date: 20090527
  Receipt Date: 20090527
  Transmission Date: 20091009
  Serious: Yes (Death)
  Sender: FDA-Public Use
  Company Number: None

PATIENT
  Age: 82 Year
  Sex: Female
  Weight: 58.514 kg

DRUGS (2)
  1. EXTRA STRENGTH PAIN RELIEF CAPLET 500MG EACH CVS PHARMACY [Suspect]
     Indication: ARTHRALGIA
     Dosage: AS NEED FOR ARTHRITIS PAIN AS NEEDED
     Dates: start: 20090101, end: 20090414
  2. ACETAMINOPHEN [Suspect]
     Indication: ARTHRALGIA
     Dosage: AS NEEDED FOR ARTRITIS PAIN AS NEEDED

REACTIONS (11)
  - BEDRIDDEN [None]
  - BLOOD PRESSURE DECREASED [None]
  - BLOOD PRESSURE INCREASED [None]
  - CARDIAC FAILURE [None]
  - FLUID INTAKE REDUCED [None]
  - GASTROINTESTINAL PAIN [None]
  - HAEMORRHAGE [None]
  - HEART RATE DECREASED [None]
  - HYPOPHAGIA [None]
  - LOSS OF CONSCIOUSNESS [None]
  - MEDICATION ERROR [None]
